FAERS Safety Report 18867523 (Version 3)
Quarter: 2021Q2

REPORT INFORMATION
  Report Type: Report from Study
  Country: EG (occurrence: EG)
  Receive Date: 20210209
  Receipt Date: 20210409
  Transmission Date: 20210717
  Serious: Yes (Other)
  Sender: FDA-Public Use
  Company Number: EG-REGENERON PHARMACEUTICALS, INC.-2020-97380

PATIENT

DRUGS (5)
  1. EYLEA [Suspect]
     Active Substance: AFLIBERCEPT
     Indication: MACULAR OEDEMA
     Dosage: UNK (LEFT EYE)
     Dates: start: 20200225, end: 20200225
  2. NEVILOB [Concomitant]
     Indication: HYPERTENSION
     Dosage: 5 MG, QD IN THE MORNING
     Dates: start: 2019
  3. EYLEA [Suspect]
     Active Substance: AFLIBERCEPT
     Dosage: UNK (LEFT EYE)
     Dates: start: 20200325, end: 20200325
  4. EYLEA [Suspect]
     Active Substance: AFLIBERCEPT
     Dosage: UNK (LEFT EYE)
     Dates: start: 20200425, end: 20200425
  5. EYLEA [Suspect]
     Active Substance: AFLIBERCEPT
     Dosage: UNK (RIGHT EYE), LAST EYLEA INJECTION WAS ON 19?DEC?20 IN THE RIGHT EYE, TOTAL NUMBER OF EYLEA INJEC
     Dates: start: 20201219, end: 20201219

REACTIONS (3)
  - Macular oedema [Not Recovered/Not Resolved]
  - Intraocular lens implant [Recovering/Resolving]
  - Eye infection [Recovering/Resolving]

NARRATIVE: CASE EVENT DATE: 20201219
